FAERS Safety Report 24741879 (Version 1)
Quarter: 2024Q4

REPORT INFORMATION
  Report Type: Spontaneous
  Country: AU (occurrence: AU)
  Receive Date: 20241217
  Receipt Date: 20241217
  Transmission Date: 20250115
  Serious: Yes (Other)
  Sender: AMGEN
  Company Number: AU-AMGEN-AUSSP2024244923

PATIENT
  Age: 29 Year
  Sex: Female

DRUGS (3)
  1. WEZLANA [Suspect]
     Active Substance: USTEKINUMAB-AUUB
     Indication: Product used for unknown indication
     Dosage: UNK UNK, Q4WK
     Route: 065
  2. ENTYVIO [Suspect]
     Active Substance: VEDOLIZUMAB
     Indication: Colitis ulcerative
     Route: 058
  3. UPADACITINIB HEMIHYDRATE [Suspect]
     Active Substance: UPADACITINIB HEMIHYDRATE
     Indication: Product used for unknown indication
     Route: 065

REACTIONS (3)
  - Lower respiratory tract infection [Unknown]
  - Colitis ulcerative [Unknown]
  - Pulmonary mass [Unknown]

NARRATIVE: CASE EVENT DATE: 20230601
